FAERS Safety Report 10531351 (Version 14)
Quarter: 2016Q2

REPORT INFORMATION
  Report Type: Report from Study
  Country: EC (occurrence: EC)
  Receive Date: 20141021
  Receipt Date: 20160628
  Transmission Date: 20160815
  Serious: Yes (Hospitalization)
  Sender: FDA-Public Use
  Company Number: PHHY2014EC135340

PATIENT
  Age: 9 Year
  Sex: Male
  Weight: 18 kg

DRUGS (5)
  1. EXJADE [Suspect]
     Active Substance: DEFERASIROX
     Dosage: 35 MG/KG, QD (625 MG DAILY)
     Route: 048
     Dates: start: 20150420, end: 20150802
  2. EXJADE [Suspect]
     Active Substance: DEFERASIROX
     Indication: SICKLE CELL ANAEMIA
     Dosage: 25 MG/KG, QD (500 MG DAILY)
     Route: 048
     Dates: start: 20140908, end: 20150419
  3. EPAMIN [Concomitant]
     Active Substance: PHENYTOIN SODIUM
     Indication: SEIZURE
     Dosage: 2 CM3, QD
     Route: 065
     Dates: start: 20160623
  4. VITAMIN B COMPLEX [Concomitant]
     Active Substance: CYANOCOBALAMIN\DEXPANTHENOL\NIACINAMIDE\PYRIDOXINE HYDROCHLORIDE\RIBOFLAVIN 5^-PHOSPHATE SODIUM\THIAMINE HYDROCHLORIDE\VITAMIN B COMPLEX
     Indication: PRODUCT USED FOR UNKNOWN INDICATION
     Route: 065
  5. EXJADE [Suspect]
     Active Substance: DEFERASIROX
     Dosage: 25 MG/KG, QD (500 MG DAILY)
     Route: 048
     Dates: start: 20150803

REACTIONS (18)
  - Ear infection [Recovered/Resolved]
  - Limb injury [Recovering/Resolving]
  - Pyrexia [Recovered/Resolved]
  - Sickle cell anaemia with crisis [Recovered/Resolved]
  - Bone pain [Recovered/Resolved]
  - Fear [Not Recovered/Not Resolved]
  - Seizure [Not Recovered/Not Resolved]
  - Full blood count decreased [Recovered/Resolved]
  - Diarrhoea [Not Recovered/Not Resolved]
  - Accident at home [Recovering/Resolving]
  - Full blood count decreased [Not Recovered/Not Resolved]
  - Headache [Not Recovered/Not Resolved]
  - Dizziness [Not Recovered/Not Resolved]
  - Insomnia [Not Recovered/Not Resolved]
  - Pallor [Not Recovered/Not Resolved]
  - Haemorrhage [Recovering/Resolving]
  - Pain in extremity [Not Recovered/Not Resolved]
  - Vomiting [Not Recovered/Not Resolved]

NARRATIVE: CASE EVENT DATE: 20141010
